FAERS Safety Report 6879918-6 (Version None)
Quarter: 2010Q3

REPORT INFORMATION
  Report Type: 
  Country: None (occurrence: None)
  Receive Date: 20100728
  Receipt Date: 20100720
  Transmission Date: 20110219
  Serious: Yes (Other)
  Sender: FDA-Public Use
  Company Number: US-SANOFI-AVENTIS-2010SA042920

PATIENT

DRUGS (1)
  1. NASACORT AQ [Suspect]
     Route: 045

REACTIONS (2)
  - ANAPHYLACTIC REACTION [None]
  - PERIORBITAL OEDEMA [None]
